FAERS Safety Report 9189249 (Version 1)
Quarter: 2013Q1

REPORT INFORMATION
  Report Type: Spontaneous
  Country: US (occurrence: None)
  Receive Date: 20130321
  Receipt Date: 20130321
  Transmission Date: 20140127
  Serious: No
  Sender: FDA-Public Use
  Company Number: None

PATIENT
  Age: 68 Year
  Sex: Female
  Weight: 77.11 kg

DRUGS (2)
  1. DETROL [Suspect]
     Indication: MICTURITION URGENCY
     Dosage: 4MG  DAILY  PO
     Route: 048
     Dates: start: 20130303, end: 20130320
  2. DETROL [Suspect]
     Indication: POLLAKIURIA
     Dosage: 4MG  DAILY  PO
     Route: 048
     Dates: start: 20130303, end: 20130320

REACTIONS (2)
  - Depression [None]
  - Anxiety [None]
